FAERS Safety Report 6833713-2 (Version None)
Quarter: 2010Q3

REPORT INFORMATION
  Report Type: 
  Country: None (occurrence: None)
  Receive Date: 20100712
  Receipt Date: 20070330
  Transmission Date: 20110219
  Serious: No
  Sender: FDA-Public Use
  Company Number: US-PFIZER INC-2007027146

PATIENT
  Sex: Female
  Weight: 104.33 kg

DRUGS (15)
  1. CHANTIX [Suspect]
     Indication: SMOKING CESSATION THERAPY
     Dates: start: 20070330
  2. GLUCOPHAGE [Concomitant]
  3. GLUCOTROL [Concomitant]
  4. NEXIUM [Concomitant]
  5. KLONOPIN [Concomitant]
     Indication: PANIC DISORDER
  6. ZOCOR [Concomitant]
  7. FEMARA [Concomitant]
  8. NORVASC [Concomitant]
  9. DITROPAN [Concomitant]
  10. AVANDIA [Concomitant]
  11. SITAGLIPTIN PHOSPHATE [Concomitant]
  12. EFFEXOR [Concomitant]
  13. RISPERDAL [Concomitant]
  14. PERCOCET [Concomitant]
  15. ACETYLSALICYLIC ACID [Concomitant]

REACTIONS (6)
  - ANXIETY [None]
  - HEART RATE INCREASED [None]
  - NERVOUSNESS [None]
  - PALPITATIONS [None]
  - PANIC DISORDER [None]
  - TOBACCO USER [None]
